FAERS Safety Report 6084983-2 (Version None)
Quarter: 2009Q1

REPORT INFORMATION
  Report Type: 
  Country: None (occurrence: None)
  Receive Date: 20090220
  Receipt Date: 20090216
  Transmission Date: 20090719
  Serious: Yes (Other)
  Sender: FDA-Public Use
  Company Number: US-WYE-H06032308

PATIENT
  Sex: Male
  Weight: 63.56 kg

DRUGS (2)
  1. ADVIL [Suspect]
     Indication: PAIN
     Dosage: 1 TO 2 LIQUI-GELS AS NEEDED
     Route: 048
     Dates: start: 20080701, end: 20080913
  2. EMERGEN-C [Interacting]
     Indication: NUTRITIONAL SUPPORT
     Route: 048
     Dates: start: 20060101

REACTIONS (8)
  - ANAPHYLACTOID REACTION [None]
  - DRUG INTERACTION [None]
  - ERYTHEMA [None]
  - EYE SWELLING [None]
  - HYPERSENSITIVITY [None]
  - LIP SWELLING [None]
  - SWELLING FACE [None]
  - URTICARIA [None]
